FAERS Safety Report 5175670-3 (Version None)
Quarter: 2006Q4

REPORT INFORMATION
  Report Type: 
  Country: None (occurrence: None)
  Receive Date: 20061215
  Receipt Date: 20060628
  Transmission Date: 20070319
  Serious: No
  Sender: FDA-Public Use
  Company Number: US-AMGEN-KDL184790

PATIENT
  Sex: Female

DRUGS (1)
  1. ENBREL [Suspect]
     Indication: RHEUMATOID ARTHRITIS
     Route: 058
     Dates: start: 20041201

REACTIONS (5)
  - PSORIASIS [None]
  - RADIATION SKIN INJURY [None]
  - SKIN ULCER [None]
  - SQUAMOUS CELL CARCINOMA [None]
  - VAGINAL ULCERATION [None]
